FAERS Safety Report 4752397-0 (Version None)
Quarter: 2005Q3

REPORT INFORMATION
  Report Type: 
  Country: None (occurrence: None)
  Receive Date: 20050823
  Receipt Date: 20050817
  Transmission Date: 20060218
  Serious: Yes (Hospitalization)
  Sender: FDA-Public Use
  Company Number: 2005116546

PATIENT
  Age: 51 Year
  Sex: Male

DRUGS (1)
  1. SULFASALAZINE [Suspect]
     Indication: RHEUMATOID ARTHRITIS
     Dosage: 1000 MG (500 MG, 1 IN 1 D), ORAL
     Route: 048
     Dates: start: 20050525, end: 20050714

REACTIONS (2)
  - AGRANULOCYTOSIS [None]
  - FUNGAL OESOPHAGITIS [None]
